FAERS Safety Report 15984074 (Version 1)
Quarter: 2019Q1

REPORT INFORMATION
  Report Type: Report from Study
  Country: None (occurrence: US)
  Receive Date: 20190220
  Receipt Date: 20190220
  Transmission Date: 20190418
  Serious: Yes (Hospitalization)
  Sender: FDA-Public Use
  Company Number: US-ABBVIE-19S-163-2671488-00

PATIENT
  Age: 61 Year
  Sex: Male

DRUGS (2)
  1. DUOPA [Suspect]
     Active Substance: CARBIDOPA\LEVODOPA
     Dosage: CD: 3ML/HR
     Route: 050
  2. DUOPA [Suspect]
     Active Substance: CARBIDOPA\LEVODOPA
     Indication: PARKINSON^S DISEASE
     Dosage: CD: 5ML/HR
     Route: 050
     Dates: start: 20170601

REACTIONS (3)
  - Incorrect dose administered [Not Recovered/Not Resolved]
  - Chest pain [Unknown]
  - Pneumonia [Unknown]

NARRATIVE: CASE EVENT DATE: 201902
